FAERS Safety Report 16090011 (Version 1)
Quarter: 2019Q1

REPORT INFORMATION
  Report Type: Spontaneous
  Country: FR (occurrence: FR)
  Receive Date: 20190319
  Receipt Date: 20190319
  Transmission Date: 20190418
  Serious: Yes (Life-Threatening, Hospitalization)
  Sender: FDA-Public Use
  Company Number: FR-SA-2010-01064

PATIENT
  Age: 43 Year
  Sex: Male
  Weight: 69 kg

DRUGS (1)
  1. IMMUCYST [Suspect]
     Active Substance: BACILLUS CALMETTE-GUERIN SUBSTRAIN CONNAUGHT LIVE ANTIGEN
     Indication: BLADDER NEOPLASM
     Dosage: UNK
     Route: 043
     Dates: start: 20100111, end: 20100111

REACTIONS (11)
  - Cell death [Not Recovered/Not Resolved]
  - Fatigue [Not Recovered/Not Resolved]
  - Pyrexia [Not Recovered/Not Resolved]
  - Disseminated Bacillus Calmette-Guerin infection [Recovering/Resolving]
  - Bone marrow granuloma [Unknown]
  - Granulomatous liver disease [Not Recovered/Not Resolved]
  - Hyperhidrosis [Not Recovered/Not Resolved]
  - Cholestasis [Not Recovered/Not Resolved]
  - Chills [Not Recovered/Not Resolved]
  - Hepatosplenomegaly [Not Recovered/Not Resolved]
  - Leukopenia [Unknown]

NARRATIVE: CASE EVENT DATE: 20100111
